FAERS Safety Report 4686931-6 (Version None)
Quarter: 2005Q2

REPORT INFORMATION
  Report Type: 
  Country: None (occurrence: None)
  Receive Date: 20050608
  Receipt Date: 20050526
  Transmission Date: 20051028
  Serious: Yes (Other)
  Sender: FDA-Public Use
  Company Number: 200505IM000204

PATIENT
  Age: 46 Year
  Sex: Male
  Weight: 82.5547 kg

DRUGS (4)
  1. INFERGEN [Suspect]
     Indication: HEPATITIS C
     Dosage: 15 UG, QD
     Dates: start: 20040908, end: 20050214
  2. RIBAVIRIN [Concomitant]
  3. PREVACID [Concomitant]
  4. ACCUPRIL [Concomitant]

REACTIONS (3)
  - RETINOPATHY [None]
  - VISION BLURRED [None]
  - VISUAL ACUITY REDUCED [None]
